FAERS Safety Report 22150566 (Version 1)
Quarter: 2023Q1

REPORT INFORMATION
  Report Type: Spontaneous
  Country: FR (occurrence: FR)
  Receive Date: 20230329
  Receipt Date: 20230329
  Transmission Date: 20230417
  Serious: Yes (Hospitalization)
  Sender: FDA-Public Use
  Company Number: None

PATIENT
  Age: 53 Year
  Sex: Female
  Weight: 74 kg

DRUGS (2)
  1. ATORVASTATIN [Suspect]
     Active Substance: ATORVASTATIN
     Indication: Prophylaxis
     Dosage: STRENGTH: 80 MG, 80 MG MORNING AND EVENING
     Dates: start: 20220401
  2. RAMIPRIL [Concomitant]
     Active Substance: RAMIPRIL
     Indication: Prophylaxis
     Dosage: STRENGTH: 1.25 MG, 1.25 MG IN THE EVENING
     Dates: start: 20220401

REACTIONS (1)
  - Pemphigus [Recovering/Resolving]

NARRATIVE: CASE EVENT DATE: 20221201
